FAERS Safety Report 6004704-9 (Version None)
Quarter: 2008Q4

REPORT INFORMATION
  Report Type: 
  Country: None (occurrence: None)
  Receive Date: 20081216
  Receipt Date: 20081211
  Transmission Date: 20090506
  Serious: Yes (Other)
  Sender: FDA-Public Use
  Company Number: US-ROXANE LABORATORIES, INC.-2008-RO-00397RO

PATIENT
  Age: 54 Year
  Sex: Female

DRUGS (2)
  1. ROPINIROLE [Suspect]
     Indication: RESTLESS LEGS SYNDROME
     Dosage: 1MG
  2. ROPINIROLE [Suspect]
     Dosage: .5MG

REACTIONS (3)
  - MIDDLE INSOMNIA [None]
  - NIGHT SWEATS [None]
  - SLEEP DISORDER [None]
